FAERS Safety Report 23975952 (Version 1)
Quarter: 2024Q2

REPORT INFORMATION
  Report Type: Spontaneous
  Country: PL (occurrence: PL)
  Receive Date: 20240614
  Receipt Date: 20240614
  Transmission Date: 20240716
  Serious: Yes (Life-Threatening, Hospitalization, Other)
  Sender: FDA-Public Use
  Company Number: PL-BAXTER-2014BAX065320

PATIENT
  Age: 23 Year
  Sex: Female

DRUGS (11)
  1. CYCLOPHOSPHAMIDE [Suspect]
     Active Substance: CYCLOPHOSPHAMIDE
     Indication: Acute lymphocytic leukaemia
     Dosage: FIRST CONSOLIDATION TREATMENT ACCORDING TO THE PALG ALL6 PROTOCOL
     Route: 065
  2. CYCLOPHOSPHAMIDE [Suspect]
     Active Substance: CYCLOPHOSPHAMIDE
     Dosage: SECOND CYCLE OF CHEMOTHERAPY WAS INTRODUCED (ON DAY 18 OF THE FIRST CHEMOTHERAPY CYCLE)
     Route: 065
  3. FLUCONAZOLE [Suspect]
     Active Substance: FLUCONAZOLE
     Indication: Cholecystitis acute
     Route: 065
  4. FLUCONAZOLE [Suspect]
     Active Substance: FLUCONAZOLE
     Indication: Pyrexia
  5. CYTARABINE [Suspect]
     Active Substance: CYTARABINE
     Indication: Acute lymphocytic leukaemia
     Dosage: FLAM PROTOCOL CHEMOTHERAPY
     Route: 065
  6. CYTARABINE [Suspect]
     Active Substance: CYTARABINE
     Dosage: FIRST CONSOLIDATION TREATMENT ACCORDING TO THE PALG ALL6 PROTOCOL
     Route: 065
  7. CYTARABINE [Suspect]
     Active Substance: CYTARABINE
     Dosage: SECOND CYCLE OF CHEMOTHERAPY WAS INTRODUCED (ON DAY 18 OF THE FIRST CHEMOTHERAPY CYCLE)
     Route: 065
  8. PEGASPARGASE [Suspect]
     Active Substance: PEGASPARGASE
     Indication: Acute lymphocytic leukaemia
     Dosage: FIRST CONSOLIDATION TREATMENT ACCORDING TO THE PALG ALL6 PROTOCOL
     Route: 065
  9. PEGASPARGASE [Suspect]
     Active Substance: PEGASPARGASE
     Dosage: SECOND CYCLE OF CHEMOTHERAPY WAS INTRODUCED (ON DAY 18 OF THE FIRST CHEMOTHERAPY CYCLE)
     Route: 065
  10. FLUDARABINE PHOSPHATE [Suspect]
     Active Substance: FLUDARABINE PHOSPHATE
     Indication: Acute lymphocytic leukaemia
     Dosage: FLAM PROTOCOL CHEMOTHERAPY
     Route: 065
  11. MITOXANTRONE HYDROCHLORIDE [Suspect]
     Active Substance: MITOXANTRONE HYDROCHLORIDE
     Indication: Acute lymphocytic leukaemia
     Dosage: FLAM PROTOCOL CHEMOTHERAPY
     Route: 065

REACTIONS (8)
  - Cholecystitis acute [Recovered/Resolved]
  - Pyrexia [Recovered/Resolved]
  - Abdominal pain [Recovered/Resolved]
  - Diarrhoea [Recovered/Resolved]
  - Gallbladder enlargement [Recovered/Resolved]
  - Vomiting [Recovered/Resolved]
  - Abdominal pain upper [Recovered/Resolved]
  - Neutropenia [Recovered/Resolved]
